FAERS Safety Report 7649813-3 (Version None)
Quarter: 2011Q3

REPORT INFORMATION
  Report Type: 
  Country: None (occurrence: None)
  Receive Date: 20110802
  Receipt Date: 20110726
  Transmission Date: 20111222
  Serious: Yes (Hospitalization, Other)
  Sender: FDA-Public Use
  Company Number: US-BAYER-200818456NA

PATIENT
  Age: 23 Year
  Sex: Female
  Weight: 77 kg

DRUGS (1)
  1. MIRENA [Suspect]
     Indication: CONTRACEPTION
     Dosage: 20 UG/DAY, CONTINUOUS
     Route: 015
     Dates: start: 20070724

REACTIONS (11)
  - TONGUE BITING [None]
  - DISORIENTATION [None]
  - POOR QUALITY SLEEP [None]
  - ORAL PAIN [None]
  - CONVULSION [None]
  - ABDOMINAL PAIN [None]
  - OVARIAN CYST [None]
  - FEELING OF BODY TEMPERATURE CHANGE [None]
  - FALL [None]
  - AMENORRHOEA [None]
  - EPILEPSY [None]
